FAERS Safety Report 18190887 (Version 2)
Quarter: 2020Q3

REPORT INFORMATION
  Report Type: Spontaneous
  Country: JP (occurrence: JP)
  Receive Date: 20200825
  Receipt Date: 20200917
  Transmission Date: 20201103
  Serious: Yes (Death)
  Sender: FDA-Public Use
  Company Number: JP-TEVA-2020-JP-1819398

PATIENT
  Age: 8 Decade
  Sex: Female

DRUGS (2)
  1. AZILECT [Suspect]
     Active Substance: RASAGILINE MESYLATE
     Indication: PARKINSON^S DISEASE
     Dosage: 1 MILLIGRAM DAILY;
     Route: 048
     Dates: start: 201909, end: 201912
  2. LEVODOPA [Concomitant]
     Active Substance: LEVODOPA
     Route: 065

REACTIONS (2)
  - Anaemia [Recovered/Resolved]
  - Anaemia [Fatal]
